FAERS Safety Report 10190455 (Version 2)
Quarter: 2014Q2

REPORT INFORMATION
  Report Type: Report from Study
  Country: GB (occurrence: GB)
  Receive Date: 20140522
  Receipt Date: 20140627
  Transmission Date: 20141212
  Serious: Yes (Life-Threatening, Hospitalization)
  Sender: FDA-Public Use
  Company Number: GB-BRISTOL-MYERS SQUIBB COMPANY-20765475

PATIENT
  Age: 35 Year
  Sex: Female

DRUGS (1)
  1. IPILIMUMAB [Suspect]
     Indication: METASTATIC MALIGNANT MELANOMA
     Route: 042
     Dates: start: 20140313, end: 20140424

REACTIONS (5)
  - Headache [Unknown]
  - Ataxia [Unknown]
  - Subarachnoid haemorrhage [Unknown]
  - Hydrocephalus [Unknown]
  - Malignant neoplasm progression [Unknown]
